FAERS Safety Report 15854290 (Version 1)
Quarter: 2019Q1

REPORT INFORMATION
  Report Type: Spontaneous
  Country: US (occurrence: US)
  Receive Date: 20190121
  Receipt Date: 20190121
  Transmission Date: 20190417
  Serious: Yes (Life-Threatening, Disabling)
  Sender: FDA-Public Use
  Company Number: None

PATIENT
  Age: 36 Year
  Sex: Female
  Weight: 63 kg

DRUGS (1)
  1. CIPROFLOXACIN. [Suspect]
     Active Substance: CIPROFLOXACIN
     Indication: URINARY TRACT INFECTION
     Dosage: ?          QUANTITY:1 TABLET(S);?
     Route: 048
     Dates: start: 20180816, end: 20180817

REACTIONS (31)
  - Panic attack [None]
  - Extraocular muscle paresis [None]
  - Chest pain [None]
  - Abdominal distension [None]
  - Depression [None]
  - Fatigue [None]
  - Dizziness [None]
  - Fungal skin infection [None]
  - Photophobia [None]
  - Depersonalisation/derealisation disorder [None]
  - Depressed level of consciousness [None]
  - Derealisation [None]
  - Head titubation [None]
  - Muscle twitching [None]
  - Muscular weakness [None]
  - Visual impairment [None]
  - Pain [None]
  - Pruritus [None]
  - Suicidal ideation [None]
  - Limb discomfort [None]
  - Head discomfort [None]
  - Feeling abnormal [None]
  - Flatulence [None]
  - Vision blurred [None]
  - Mood swings [None]
  - Eye pain [None]
  - Amnesia [None]
  - Anxiety [None]
  - Diarrhoea [None]
  - Tremor [None]
  - Hypoaesthesia [None]

NARRATIVE: CASE EVENT DATE: 20180817
